FAERS Safety Report 9638745 (Version 2)
Quarter: 2014Q1

REPORT INFORMATION
  Report Type: Spontaneous
  Country: US (occurrence: US)
  Receive Date: 20131022
  Receipt Date: 20140122
  Transmission Date: 20141002
  Serious: No
  Sender: FDA-Public Use
  Company Number: US-BRISTOL-MYERS SQUIBB COMPANY-19220490

PATIENT
  Age: 80 Year
  Sex: Female
  Weight: 61.22 kg

DRUGS (1)
  1. ELIQUIS [Suspect]
     Indication: ATRIAL FIBRILLATION
     Dates: start: 20130817, end: 2013

REACTIONS (3)
  - Abdominal distension [Unknown]
  - Local swelling [Unknown]
  - Local swelling [Unknown]
